FAERS Safety Report 6533354-0 (Version None)
Quarter: 2010Q1

REPORT INFORMATION
  Report Type: 
  Country: None (occurrence: None)
  Receive Date: 20100111
  Receipt Date: 20100106
  Transmission Date: 20100710
  Serious: Yes (Death, Hospitalization)
  Sender: FDA-Public Use
  Company Number: B0624059A

PATIENT
  Age: 56 Year
  Sex: Male
  Weight: 126.4 kg

DRUGS (6)
  1. CEFTAZIDIME [Suspect]
     Indication: BRONCHIECTASIS
     Dosage: 6G PER DAY
     Route: 042
     Dates: start: 20091113, end: 20091130
  2. GENTAMICIN [Concomitant]
     Indication: LUNG INFECTION
     Dosage: 240MG PER DAY
     Route: 042
     Dates: start: 20091117, end: 20091130
  3. DOXYCYCLINE [Concomitant]
     Indication: LUNG INFECTION
     Dosage: 200MG PER DAY
     Route: 048
     Dates: start: 20091124, end: 20091130
  4. TRAMADOL HCL [Concomitant]
     Indication: CHEST PAIN
     Dosage: 400MG PER DAY
     Route: 048
     Dates: start: 20091125
  5. IBUPROFEN [Concomitant]
     Indication: CHEST PAIN
     Dosage: 600MG PER DAY
     Route: 048
     Dates: start: 20091120
  6. PREDNISOLONE [Concomitant]
     Indication: BRONCHIECTASIS
     Route: 048

REACTIONS (3)
  - AGRANULOCYTOSIS [None]
  - PULMONARY THROMBOSIS [None]
  - THROMBOCYTOPENIA [None]
